FAERS Safety Report 22725184 (Version 3)
Quarter: 2023Q4

REPORT INFORMATION
  Report Type: Spontaneous
  Country: US (occurrence: US)
  Receive Date: 20230719
  Receipt Date: 20231002
  Transmission Date: 20240110
  Serious: Yes (Death, Hospitalization, Other)
  Sender: FDA-Public Use
  Company Number: US-SA-2023SA217333

PATIENT
  Age: 73 Year
  Sex: Male

DRUGS (6)
  1. CEMIPLIMAB [Suspect]
     Active Substance: CEMIPLIMAB
     Indication: Chronic graft versus host disease
     Dosage: UNK, LOW DOSE
  2. BELUMOSUDIL MESYLATE [Suspect]
     Active Substance: BELUMOSUDIL MESYLATE
     Indication: Chronic graft versus host disease
     Dosage: 200 MG, QD
  3. BELUMOSUDIL MESYLATE [Suspect]
     Active Substance: BELUMOSUDIL MESYLATE
     Dosage: UNK
  4. PREDNISONE [Suspect]
     Active Substance: PREDNISONE
     Indication: Chronic graft versus host disease
     Dosage: UNK, TAPER
  5. PREDNISONE [Suspect]
     Active Substance: PREDNISONE
     Dosage: UNK, HIGH DOSE
  6. RUXOLITINIB [Suspect]
     Active Substance: RUXOLITINIB
     Indication: Acute myeloid leukaemia

REACTIONS (5)
  - Hepatic failure [Fatal]
  - Drug-induced liver injury [Fatal]
  - Squamous cell carcinoma of skin [Fatal]
  - Neoplasm skin [Fatal]
  - Skin lesion [Fatal]
